FAERS Safety Report 4449262-5 (Version None)
Quarter: 2004Q3

REPORT INFORMATION
  Report Type: 
  Country: None (occurrence: None)
  Receive Date: 20040913
  Receipt Date: 20040903
  Transmission Date: 20050211
  Serious: Yes (Hospitalization)
  Sender: FDA-Public Use
  Company Number: KII-2004-0013267

PATIENT
  Age: 30 Year
  Sex: Male

DRUGS (4)
  1. OXYCONTIN [Suspect]
     Indication: DRUG USE FOR UNKNOWN INDICATION
     Dosage: ORAL
     Route: 048
     Dates: start: 20040801
  2. BENZODIAZEPINE DERIVATIVES () [Suspect]
     Indication: ANXIETY
     Dosage: ORAL
     Route: 048
  3. SSRI () [Suspect]
     Indication: DRUG USE FOR UNKNOWN INDICATION
     Dosage: ORAL
     Route: 048
  4. PROPOXYPHENE HCL [Suspect]
     Indication: PAIN
     Dosage: ORAL
     Route: 048

REACTIONS (5)
  - BLOOD PRESSURE DECREASED [None]
  - JOB DISSATISFACTION [None]
  - MEDICATION ERROR [None]
  - MIOSIS [None]
  - SOMNOLENCE [None]
